FAERS Safety Report 9119081 (Version 1)
Quarter: 2013Q1

REPORT INFORMATION
  Report Type: Spontaneous
  Country: US (occurrence: None)
  Receive Date: 20130221
  Receipt Date: 20130221
  Transmission Date: 20140127
  Serious: No
  Sender: FDA-Public Use
  Company Number: None

PATIENT
  Age: 58 Year
  Sex: Female

DRUGS (2)
  1. BUTRANS 10MCG/HR [Suspect]
     Indication: MYOFASCIAL PAIN SYNDROME
     Dosage: 1 PATCH Q 7 DAYS TRANSDERMAL
     Route: 062
  2. BUTRANS 10MCG/HR [Suspect]
     Indication: NECK PAIN
     Dosage: 1 PATCH Q 7 DAYS TRANSDERMAL
     Route: 062

REACTIONS (2)
  - Application site rash [None]
  - Excoriation [None]
